FAERS Safety Report 5312087-2 (Version None)
Quarter: 2007Q2

REPORT INFORMATION
  Report Type: 
  Country: None (occurrence: None)
  Receive Date: 20070430
  Receipt Date: 20060512
  Transmission Date: 20071010
  Serious: Yes (Other)
  Sender: FDA-Public Use
  Company Number: 2006UW09435

PATIENT
  Age: 84 Year
  Sex: Female
  Weight: 63.5 kg

DRUGS (4)
  1. NEXIUM [Suspect]
     Indication: GASTROOESOPHAGEAL REFLUX DISEASE
     Route: 048
  2. LASIX [Concomitant]
     Dates: start: 19810101
  3. POTASSIUM ACETATE [Concomitant]
     Dates: start: 19810101
  4. ATENOLOL [Concomitant]
     Dates: start: 19810101

REACTIONS (1)
  - ANAPHYLACTIC SHOCK [None]
